FAERS Safety Report 9576944 (Version 1)
Quarter: 2013Q4

REPORT INFORMATION
  Report Type: Spontaneous
  Country: US (occurrence: US)
  Receive Date: 20131001
  Receipt Date: 20131001
  Transmission Date: 20140711
  Serious: Yes (Other)
  Sender: FDA-Public Use
  Company Number: US-AMGEN-USASP2013005132

PATIENT
  Sex: Female
  Weight: 48.53 kg

DRUGS (13)
  1. ENBREL [Suspect]
     Indication: RHEUMATOID ARTHRITIS
     Dosage: UNK UNK, QWK
  2. ADVAIR [Concomitant]
     Dosage: UNK
  3. ALBUTEROL                          /00139501/ [Concomitant]
     Dosage: UNK
  4. AMBIEN [Concomitant]
     Dosage: UNK
  5. CELEXA                             /01400501/ [Concomitant]
     Dosage: UNK
  6. DUONEB [Concomitant]
     Dosage: UNK
  7. FIORICET [Concomitant]
     Dosage: UNK
  8. METHOTREXATE [Concomitant]
     Dosage: UNK
  9. MORPHINE                           /00036302/ [Concomitant]
     Dosage: UNK
  10. VERAPAMIL [Concomitant]
     Dosage: UNK
  11. VITAMIN D                          /00107901/ [Concomitant]
     Dosage: UNK
  12. PRAVASTATIN [Concomitant]
     Dosage: UNK
  13. PREDNISONE [Concomitant]
     Dosage: UNK

REACTIONS (1)
  - Breast abscess [Unknown]
